FAERS Safety Report 10783265 (Version 1)
Quarter: 2015Q1

REPORT INFORMATION
  Report Type: Spontaneous
  Country: US (occurrence: US)
  Receive Date: 20150210
  Receipt Date: 20150210
  Transmission Date: 20150721
  Serious: Yes (Other)
  Sender: FDA-Public Use
  Company Number: US-GLAXOSMITHKLINE-US2015016225

PATIENT

DRUGS (1)
  1. TANZEUM [Suspect]
     Active Substance: ALBIGLUTIDE

REACTIONS (1)
  - Pancreatitis [Unknown]
